FAERS Safety Report 5411020-2 (Version None)
Quarter: 2007Q3

REPORT INFORMATION
  Report Type: 
  Country: None (occurrence: None)
  Receive Date: 20070810
  Receipt Date: 20070802
  Transmission Date: 20080115
  Serious: Yes (Hospitalization, Other)
  Sender: FDA-Public Use
  Company Number: US-AVENTIS-200715631US

PATIENT
  Age: 79 Year
  Sex: Female

DRUGS (13)
  1. LANTUS [Suspect]
     Dates: start: 20051201, end: 20070101
  2. LANTUS [Suspect]
     Dates: start: 20070101
  3. OPTICLIK GREY [Suspect]
     Dates: start: 20051201
  4. NOVOLOG [Concomitant]
     Dosage: DOSE: UNK
  5. ASPIRIN [Concomitant]
     Dosage: DOSE: UNK
  6. FUROSEMIDE [Concomitant]
     Dosage: DOSE: UNK
  7. VALSARTAN [Concomitant]
     Dosage: DOSE: UNK
  8. FEXOFENADINE HCL [Concomitant]
     Dosage: DOSE: UNK
  9. DILTIAZEM [Concomitant]
     Dosage: DOSE: UNK
  10. GABAPENTIN [Concomitant]
     Dosage: DOSE: UNK
  11. TYLENOL ARTHRITIS [Concomitant]
     Dosage: DOSE: UNK
  12. PRAVASTATINE NA [Concomitant]
     Dosage: DOSE: UNK
  13. ANTIBIOTICS [Concomitant]
     Route: 042

REACTIONS (2)
  - BLOOD GLUCOSE INCREASED [None]
  - CELLULITIS [None]
